FAERS Safety Report 14662717 (Version 1)
Quarter: 2018Q1

REPORT INFORMATION
  Report Type: Spontaneous
  Country: FR (occurrence: FR)
  Receive Date: 20180321
  Receipt Date: 20180321
  Transmission Date: 20180509
  Serious: Yes (Other)
  Sender: FDA-Public Use
  Company Number: FR-MERCK KGAA-2044185

PATIENT
  Age: 54 Year
  Sex: Female

DRUGS (1)
  1. NOVOTHYROX [Suspect]
     Active Substance: LEVOTHYROXINE SODIUM
     Indication: PRODUCT USED FOR UNKNOWN INDICATION

REACTIONS (11)
  - Fall [None]
  - Fatigue [None]
  - Headache [None]
  - Loss of personal independence in daily activities [None]
  - Balance disorder [None]
  - Crying [None]
  - Palpitations [None]
  - Mood altered [None]
  - Dizziness [None]
  - Asocial behaviour [None]
  - Alopecia [None]

NARRATIVE: CASE EVENT DATE: 20170910
